FAERS Safety Report 8385512 (Version 2)
Quarter: 2012Q4

REPORT INFORMATION
  Report Type: 
  Country: US (occurrence: US)
  Receive Date: 20120202
  Receipt Date: 20121002
  Transmission Date: 20130627
  Serious: Yes (Hospitalization, Other)
  Sender: FDA-Public Use
  Company Number: US-ROCHE-788438

PATIENT
  Age: 39 None
  Sex: Female
  Weight: 44.04 kg

DRUGS (7)
  1. ACCUTANE [Suspect]
     Indication: ACNE
     Route: 065
     Dates: start: 1988, end: 1989
  2. ACCUTANE [Suspect]
     Route: 065
  3. ACCUTANE [Suspect]
     Route: 065
     Dates: start: 1994, end: 1995
  4. ACCUTANE [Suspect]
     Route: 065
     Dates: start: 1997, end: 1998
  5. ACCUTANE [Suspect]
     Dosage: 40 mg in morning and 20 mg in evening.
     Route: 048
  6. ACCUTANE [Suspect]
     Route: 048
  7. ACCUTANE [Suspect]
     Dosage: 40 mg in morning and 10 mg in evening
     Route: 048

REACTIONS (13)
  - Crohn^s disease [Unknown]
  - Inflammatory bowel disease [Unknown]
  - Emotional distress [Not Recovered/Not Resolved]
  - Depression [Not Recovered/Not Resolved]
  - Intestinal obstruction [Unknown]
  - Mental disorder [Unknown]
  - Suicide attempt [Unknown]
  - Suicidal ideation [Unknown]
  - Colon neoplasm [Unknown]
  - Diverticulitis [Unknown]
  - Enterocolonic fistula [Unknown]
  - Lip dry [Unknown]
  - Blood cholesterol increased [Recovering/Resolving]
